FAERS Safety Report 4805216-8 (Version None)
Quarter: 2005Q4

REPORT INFORMATION
  Report Type: 
  Country: None (occurrence: None)
  Receive Date: 20051018
  Receipt Date: 20051007
  Transmission Date: 20060501
  Serious: Yes (Hospitalization)
  Sender: FDA-Public Use
  Company Number: 2005-132586-NL

PATIENT
  Age: 70 Year
  Sex: Male

DRUGS (9)
  1. MIRTAZAPINE [Suspect]
     Indication: DEPRESSION
     Dosage: 45 MG
     Route: 048
     Dates: end: 20050706
  2. MIRTAZAPINE [Suspect]
     Indication: DEPRESSION
     Dosage: 45 MG
     Route: 048
     Dates: start: 20000706, end: 20050718
  3. DEPAKENE [Suspect]
     Indication: MOOD SWINGS
     Dosage: 500 MG
     Route: 048
     Dates: start: 20050620, end: 20050720
  4. MIANSERIN HYDROCHLORIDE [Concomitant]
  5. AMLODIPINE BESYLATE [Concomitant]
  6. PROPRANOLOL HYDROCHLORIDE [Concomitant]
  7. CANDESARTAN CILEXETIL [Concomitant]
  8. ATORVASTATIN [Concomitant]
  9. TERAZOSIN HYDROCHLORIDE [Concomitant]

REACTIONS (3)
  - PALPITATIONS [None]
  - SEROTONIN SYNDROME [None]
  - THERAPEUTIC RESPONSE UNEXPECTED WITH DRUG SUBSTITUTION [None]
